FAERS Safety Report 8378940-0 (Version None)
Quarter: 2012Q2

REPORT INFORMATION
  Report Type: 
  Country: None (occurrence: None)
  Receive Date: 20120523
  Receipt Date: 20120518
  Transmission Date: 20120825
  Serious: No
  Sender: FDA-Public Use
  Company Number: US-PFIZER INC-2012121507

PATIENT
  Sex: Female
  Weight: 65.76 kg

DRUGS (5)
  1. PRAVACHOL [Concomitant]
     Indication: BLOOD CHOLESTEROL INCREASED
     Dosage: 40 MG, DAILY
  2. BENICAR [Concomitant]
     Indication: HYPERTENSION
     Dosage: 20 MG, DAILY
  3. NICOTROL [Suspect]
     Indication: SMOKING CESSATION THERAPY
     Dosage: ONE STRIP DAILY
     Route: 055
     Dates: start: 20120401
  4. ACETYLSALICYLIC ACID [Concomitant]
     Indication: TRANSIENT ISCHAEMIC ATTACK
     Dosage: 80 MG, DAILY
  5. CYMBALTA [Concomitant]
     Indication: ANXIETY
     Dosage: 90 MG, DAILY

REACTIONS (2)
  - POOR QUALITY DRUG ADMINISTERED [None]
  - INTENTIONAL DRUG MISUSE [None]
